FAERS Safety Report 22005282 (Version 1)
Quarter: 2023Q1

REPORT INFORMATION
  Report Type: Spontaneous
  Country: GB (occurrence: GB)
  Receive Date: 20230217
  Receipt Date: 20230217
  Transmission Date: 20230417
  Serious: Yes (Other)
  Sender: FDA-Public Use
  Company Number: None

PATIENT
  Age: 44 Year
  Sex: Female
  Weight: 92 kg

DRUGS (8)
  1. DEXAMETHASONE [Suspect]
     Active Substance: DEXAMETHASONE
     Indication: Brain oedema
     Route: 065
     Dates: start: 20230203
  2. AMOXICILLIN [Concomitant]
     Active Substance: AMOXICILLIN
     Indication: Product used for unknown indication
     Dosage: 3 DOSAGE FORMS DAILY;
     Dates: start: 20221221, end: 20221226
  3. BONJELA [Concomitant]
     Active Substance: CETALKONIUM CHLORIDE\CHOLINE SALICYLATE\MENTHOL
     Indication: Product used for unknown indication
     Dosage: 6 DOSAGE FORMS DAILY;
     Dates: start: 20230203
  4. CALAMINE [Concomitant]
     Active Substance: CALAMINE\FERRIC OXIDE RED\ZINC OXIDE
     Indication: Product used for unknown indication
     Dosage: APPLY AS NEEDED
     Dates: start: 20230203
  5. CITALOPRAM [Concomitant]
     Active Substance: CITALOPRAM HYDROBROMIDE
     Indication: Product used for unknown indication
     Dosage: 1 DOSAGE FORMS DAILY;
     Dates: start: 20220725
  6. FERROUS SULFATE [Concomitant]
     Active Substance: FERROUS SULFATE
     Indication: Product used for unknown indication
     Dosage: 3 DOSAGE FORMS DAILY;
     Dates: start: 20220726
  7. FEXOFENADINE [Concomitant]
     Active Substance: FEXOFENADINE HYDROCHLORIDE
     Indication: Product used for unknown indication
     Dosage: 1 DOSAGE FORMS DAILY;
     Dates: start: 20230203
  8. LEVEST [Concomitant]
     Indication: Product used for unknown indication
     Dosage: 1 DOSAGE FORMS DAILY; (MICROGYNON EQUIVALENT),
     Dates: start: 20230111

REACTIONS (3)
  - Rash macular [Not Recovered/Not Resolved]
  - Mouth ulceration [Unknown]
  - Lip swelling [Unknown]

NARRATIVE: CASE EVENT DATE: 20230203
